FAERS Safety Report 7320633-2 (Version None)
Quarter: 2011Q1

REPORT INFORMATION
  Report Type: 
  Country: None (occurrence: None)
  Receive Date: 20110228
  Receipt Date: 20110217
  Transmission Date: 20110831
  Serious: Yes (Hospitalization)
  Sender: FDA-Public Use
  Company Number: US-JNJFOC-20110205887

PATIENT
  Sex: Male
  Weight: 82.56 kg

DRUGS (12)
  1. REMICADE [Suspect]
     Route: 042
  2. REMICADE [Suspect]
     Route: 042
  3. REMICADE [Suspect]
     Route: 042
  4. FOLIC ACID [Concomitant]
     Indication: CROHN'S DISEASE
  5. ACETAMINOPHEN [Concomitant]
     Indication: PREMEDICATION
  6. OMEPRAZOLE [Concomitant]
     Indication: CROHN'S DISEASE
  7. ANTIHISTAMINES [Concomitant]
     Indication: PREMEDICATION
  8. REMICADE [Suspect]
     Indication: CROHN'S DISEASE
     Route: 042
  9. REMICADE [Suspect]
     Route: 042
  10. STEROIDS NOS [Concomitant]
     Indication: PREMEDICATION
  11. IMODIUM [Concomitant]
     Indication: CROHN'S DISEASE
  12. VITAMIN B-12 [Concomitant]
     Indication: CROHN'S DISEASE

REACTIONS (2)
  - ANAEMIA [None]
  - HAEMATOCHEZIA [None]
